FAERS Safety Report 10732951 (Version 9)
Quarter: 2017Q2

REPORT INFORMATION
  Report Type: Spontaneous
  Country: US (occurrence: US)
  Receive Date: 20150123
  Receipt Date: 20170410
  Transmission Date: 20170829
  Serious: Yes (Hospitalization, Congenital Anomaly, Other)
  Sender: FDA-Public Use
  Company Number: US-PFIZER INC-2015027514

PATIENT
  Sex: Male
  Weight: 4 kg

DRUGS (6)
  1. BACTERIOSTATIC SODIUM CHLORIDE [Concomitant]
     Active Substance: SODIUM CHLORIDE
     Dosage: 2 ML, 3X/DAY (EVERY 8 HOURS)
     Route: 064
     Dates: start: 20040322
  2. PRENATAL VITAMINS [Concomitant]
     Active Substance: VITAMINS
     Dosage: 1 DF, 1X/DAY
     Route: 064
     Dates: start: 20040322
  3. PRENATAL VITAMINS [Concomitant]
     Active Substance: VITAMINS
     Dosage: UNK
     Route: 064
     Dates: start: 20030721
  4. CYTOTEC [Suspect]
     Active Substance: MISOPROSTOL
     Indication: INDUCTION OF CERVIX RIPENING
     Dosage: 50 ?G, 2X/DAY
     Route: 064
     Dates: start: 20040322
  5. CYTOTEC [Suspect]
     Active Substance: MISOPROSTOL
     Indication: LABOUR INDUCTION
  6. TYLENOL [Concomitant]
     Active Substance: ACETAMINOPHEN
     Indication: HEADACHE
     Dosage: UNK
     Route: 064

REACTIONS (8)
  - Product use in unapproved indication [Unknown]
  - Maternal exposure during pregnancy [Unknown]
  - Cerebral palsy [Unknown]
  - Developmental delay [Unknown]
  - Hypotonia [Unknown]
  - Hypoxic-ischaemic encephalopathy [Unknown]
  - Seizure [Unknown]
  - Quadriparesis [Unknown]
